FAERS Safety Report 9660791 (Version 1)
Quarter: 2013Q4

REPORT INFORMATION
  Report Type: Spontaneous
  Country: US (occurrence: US)
  Receive Date: 20131031
  Receipt Date: 20131031
  Transmission Date: 20140711
  Serious: Yes (Hospitalization)
  Sender: FDA-Public Use
  Company Number: US-ELI_LILLY_AND_COMPANY-US201310008759

PATIENT
  Sex: Male

DRUGS (2)
  1. GEMZAR [Suspect]
  2. CISPLATIN [Suspect]

REACTIONS (3)
  - Deep vein thrombosis [Unknown]
  - Local swelling [Unknown]
  - Blister [Unknown]
